FAERS Safety Report 4654526-6 (Version None)
Quarter: 2005Q2

REPORT INFORMATION
  Report Type: 
  Country: None (occurrence: None)
  Receive Date: 20050503
  Receipt Date: 20050503
  Transmission Date: 20051028
  Serious: Yes (Hospitalization)
  Sender: FDA-Public Use
  Company Number: None

PATIENT
  Sex: Female
  Weight: 93.2 kg

DRUGS (7)
  1. HYDROXYUREA [Suspect]
     Indication: GLIOBLASTOMA MULTIFORME
     Dosage: 500MG PO BID
     Route: 048
     Dates: start: 20050324
  2. GLEEVEC [Suspect]
     Dosage: 600MG PO BID
     Route: 048
     Dates: start: 20050324
  3. DILANTIN [Concomitant]
  4. ZOFRAN [Concomitant]
  5. PREVACID [Concomitant]
  6. DARVOCET [Concomitant]
  7. MULTI-VITAMIN [Concomitant]

REACTIONS (9)
  - ABDOMINAL PAIN UPPER [None]
  - ASCITES [None]
  - CARDIAC TAMPONADE [None]
  - COUGH [None]
  - DEEP VEIN THROMBOSIS [None]
  - DRUG TOXICITY [None]
  - HEPATITIS [None]
  - PERICARDIAL EFFUSION [None]
  - PLEURAL EFFUSION [None]
